FAERS Safety Report 7535761-6 (Version None)
Quarter: 2011Q2

REPORT INFORMATION
  Report Type: 
  Country: None (occurrence: None)
  Receive Date: 20110609
  Receipt Date: 20110323
  Transmission Date: 20111010
  Serious: No
  Sender: FDA-Public Use
  Company Number: US-KINGPHARMUSA00001-K201100327

PATIENT
  Sex: Female

DRUGS (8)
  1. EMBEDA [Suspect]
     Indication: NEURALGIA
     Dosage: 30 MG, BID
     Route: 048
     Dates: start: 20100101
  2. EMBEDA [Suspect]
     Dosage: 60 MG, BID
  3. VITAMIN D [Concomitant]
     Dosage: UNK
  4. METHOTREXATE [Concomitant]
     Dosage: UNK
  5. LYRICA [Concomitant]
     Dosage: UNK
  6. FOLIC ACID [Concomitant]
     Dosage: UNK
  7. CYMBALTA [Concomitant]
     Dosage: UNK
  8. LIDODERM [Concomitant]
     Dosage: UNK

REACTIONS (6)
  - PARAESTHESIA [None]
  - TINNITUS [None]
  - FORMICATION [None]
  - EUPHORIC MOOD [None]
  - DYSPNOEA [None]
  - MALAISE [None]
